FAERS Safety Report 7737497-5 (Version None)
Quarter: 2011Q3

REPORT INFORMATION
  Report Type: 
  Country: None (occurrence: None)
  Receive Date: 20110908
  Receipt Date: 20110829
  Transmission Date: 20111222
  Serious: Yes (Other)
  Sender: FDA-Public Use
  Company Number: JP-GLAXOSMITHKLINE-B0742422A

PATIENT
  Age: 18 Year
  Sex: Male

DRUGS (1)
  1. FLOLAN [Suspect]
     Route: 042

REACTIONS (1)
  - ASCITES [None]
